FAERS Safety Report 9373851 (Version 6)
Quarter: 2014Q1

REPORT INFORMATION
  Report Type: Report from Study
  Country: GB (occurrence: GB)
  Receive Date: 20130628
  Receipt Date: 20140326
  Transmission Date: 20141002
  Serious: Yes (Hospitalization, Other)
  Sender: FDA-Public Use
  Company Number: GB-ROCHE-1242311

PATIENT
  Age: 74 Year
  Sex: Female

DRUGS (20)
  1. RANIBIZUMAB [Suspect]
     Indication: AGE-RELATED MACULAR DEGENERATION
     Dosage: OT
     Route: 050
     Dates: start: 20120121, end: 20120121
  2. RANIBIZUMAB [Suspect]
     Route: 050
  3. RANIBIZUMAB [Suspect]
     Route: 050
     Dates: start: 20130926, end: 20140204
  4. WARFARIN [Concomitant]
  5. FLUPENTIXOL [Concomitant]
     Route: 065
     Dates: start: 20120912, end: 20130404
  6. BISOPROLOL [Concomitant]
  7. BACLOFEN [Concomitant]
  8. DOXAZOSIN [Concomitant]
  9. CITALOPRAM [Concomitant]
  10. LEVOTHYROXINE [Concomitant]
  11. RAMIPRIL [Concomitant]
  12. CLOPIDOGREL [Concomitant]
  13. ATENOLOL [Concomitant]
  14. CO-CODAMOL [Concomitant]
  15. LIQUID PARAFFIN [Concomitant]
  16. PREGABALIN [Concomitant]
  17. SIMVASTATIN [Concomitant]
  18. AMLODIPINE [Concomitant]
  19. BISOPROLOL [Concomitant]
  20. LACTULOSE [Concomitant]
     Route: 065

REACTIONS (16)
  - Cerebrovascular accident [Recovered/Resolved]
  - Cardiac failure congestive [Unknown]
  - Cerebral artery thrombosis [Unknown]
  - Acute coronary syndrome [Unknown]
  - Atrial fibrillation [Unknown]
  - Age-related macular degeneration [Unknown]
  - Choroidal neovascularisation [Unknown]
  - Wound [Unknown]
  - Parkinson^s disease [Unknown]
  - Cyst [Unknown]
  - Pleural effusion [Unknown]
  - Pulmonary vascular disorder [Unknown]
  - Osteoarthritis [Unknown]
  - Prothrombin time prolonged [Unknown]
  - Pneumonia aspiration [Unknown]
  - Hypernatraemia [Unknown]
